FAERS Safety Report 15690767 (Version 1)
Quarter: 2018Q4

REPORT INFORMATION
  Report Type: Report from Study
  Country: RO (occurrence: RO)
  Receive Date: 20181205
  Receipt Date: 20181205
  Transmission Date: 20190205
  Serious: Yes (Death)
  Sender: FDA-Public Use
  Company Number: RO-THERAVANCE-2018-000038

PATIENT
  Age: 30 Year
  Sex: Male
  Weight: 50 kg

DRUGS (1)
  1. TELAVANCIN [Suspect]
     Active Substance: TELAVANCIN
     Indication: ENDOCARDITIS
     Dosage: 375 MG, QD
     Route: 042
     Dates: start: 20180210, end: 20180303

REACTIONS (1)
  - Cardiac failure [Fatal]

NARRATIVE: CASE EVENT DATE: 20180209
